FAERS Safety Report 20811634 (Version 4)
Quarter: 2022Q4

REPORT INFORMATION
  Report Type: Report from Study
  Country: FR (occurrence: FR)
  Receive Date: 20220510
  Receipt Date: 20221216
  Transmission Date: 20230113
  Serious: Yes (Hospitalization, Other)
  Sender: FDA-Public Use
  Company Number: FR-ABBVIE-22K-056-4387728-00

PATIENT
  Age: 64 Year
  Sex: Female
  Weight: 64 kg

DRUGS (12)
  1. VENETOCLAX [Suspect]
     Active Substance: VENETOCLAX
     Indication: Acute myeloid leukaemia
     Route: 048
  2. SACITUZUMAB GOVITECAN [Suspect]
     Active Substance: SACITUZUMAB GOVITECAN
     Indication: Triple negative breast cancer
     Dosage: RECEIVED 5 CYCLES;
     Route: 042
     Dates: end: 20220207
  3. SACITUZUMAB GOVITECAN [Suspect]
     Active Substance: SACITUZUMAB GOVITECAN
     Indication: Triple negative breast cancer
     Dosage: UNK; SCHEDULED DATES D1
     Route: 042
     Dates: start: 20211227, end: 20220103
  4. SACITUZUMAB GOVITECAN [Suspect]
     Active Substance: SACITUZUMAB GOVITECAN
     Indication: Triple negative breast cancer
     Route: 042
     Dates: start: 2022
  5. TRODELVY [Suspect]
     Active Substance: SACITUZUMAB GOVITECAN-HZIY
     Indication: Triple negative breast cancer
     Dosage: RECEIVED 5 CYCLES
     Route: 042
     Dates: end: 20220207
  6. TRODELVY [Suspect]
     Active Substance: SACITUZUMAB GOVITECAN-HZIY
     Indication: Triple negative breast cancer
     Dosage: SCHEDULED DATES D1 AND D8
     Route: 042
     Dates: start: 20211227, end: 20220103
  7. TRODELVY [Suspect]
     Active Substance: SACITUZUMAB GOVITECAN-HZIY
     Indication: Triple negative breast cancer
     Route: 042
     Dates: start: 2022
  8. EPIRUBICIN [Suspect]
     Active Substance: EPIRUBICIN
     Indication: Acute myeloid leukaemia
     Route: 042
     Dates: start: 20200819, end: 20201021
  9. VIDAZA [Concomitant]
     Active Substance: AZACITIDINE
     Indication: Leukaemia
     Route: 065
  10. PACLITAXEL [Concomitant]
     Active Substance: PACLITAXEL
     Indication: Product used for unknown indication
     Route: 065
  11. CARBOPLATIN [Concomitant]
     Active Substance: CARBOPLATIN
     Indication: Product used for unknown indication
     Route: 065
  12. ERIBULIN [Concomitant]
     Active Substance: ERIBULIN
     Indication: Product used for unknown indication
     Route: 065

REACTIONS (4)
  - Acute myeloid leukaemia [Not Recovered/Not Resolved]
  - Thrombocytopenia [Unknown]
  - Hospitalisation [Unknown]
  - Pancytopenia [Unknown]

NARRATIVE: CASE EVENT DATE: 20220204
